FAERS Safety Report 6342315-6 (Version None)
Quarter: 2009Q3

REPORT INFORMATION
  Report Type: 
  Country: None (occurrence: None)
  Receive Date: 20090907
  Receipt Date: 20070723
  Transmission Date: 20100115
  Serious: Yes (Other)
  Sender: FDA-Public Use
  Company Number: US-ASTRAZENECA-2007UW11136

PATIENT
  Age: 17527 Day
  Sex: Male
  Weight: 141.5 kg

DRUGS (18)
  1. SEROQUEL [Suspect]
     Indication: SCHIZOPHRENIA
     Route: 048
     Dates: start: 20020727
  2. SEROQUEL [Suspect]
     Route: 048
     Dates: end: 20060101
  3. RISPERDAL [Concomitant]
  4. THORAZINE [Concomitant]
  5. HALDOL [Concomitant]
  6. ALTACE [Concomitant]
     Route: 048
     Dates: start: 20050105
  7. COLCHICINE [Concomitant]
     Dates: start: 20050105
  8. THEOPHYLLINE [Concomitant]
     Route: 048
     Dates: start: 20050105
  9. LEXAPRO [Concomitant]
     Dates: start: 20050105
  10. COREG [Concomitant]
     Route: 048
     Dates: start: 20050105
  11. ALLOPURINOL [Concomitant]
     Dates: start: 20050105
  12. INSULIN [Concomitant]
     Dosage: 45 UNITS IN THE MORNING AND 40 UNITS BEFORE DINNER
     Dates: start: 20050105
  13. TRAZODONE [Concomitant]
     Indication: INSOMNIA
     Dates: start: 20020727
  14. WELLBUTRIN SR [Concomitant]
     Dates: start: 20020727
  15. DEPAKOTE ER [Concomitant]
     Dates: start: 20030318
  16. TOPROL-XL [Concomitant]
     Dates: start: 20030318
  17. TOPAMAX [Concomitant]
     Dates: start: 20030318
  18. ZESTRIL [Concomitant]
     Dates: start: 20020727

REACTIONS (2)
  - DIABETES MELLITUS [None]
  - DIABETIC NEUROPATHY [None]
